FAERS Safety Report 9030437 (Version 1)
Quarter: 2013Q1

REPORT INFORMATION
  Report Type: Spontaneous
  Country: CA (occurrence: CA)
  Receive Date: 20130122
  Receipt Date: 20130122
  Transmission Date: 20140127
  Serious: Yes (Other)
  Sender: FDA-Public Use
  Company Number: CA-ROXANE LABORATORIES, INC.-2013-RO-00088RO

PATIENT
  Age: 8 Year
  Sex: Male

DRUGS (1)
  1. AZATHIOPRINE [Suspect]
     Indication: CROHN^S DISEASE

REACTIONS (2)
  - Blood disorder [Recovered/Resolved]
  - Bone marrow failure [Recovered/Resolved]
